FAERS Safety Report 14804328 (Version 1)
Quarter: 2018Q2

REPORT INFORMATION
  Report Type: Spontaneous
  Country: US (occurrence: US)
  Receive Date: 20180425
  Receipt Date: 20180425
  Transmission Date: 20180711
  Serious: Yes (Other)
  Sender: FDA-Public Use
  Company Number: US-WEST-WARD PHARMACEUTICALS CORP.-US-H14001-18-03081

PATIENT
  Age: 60 Year
  Sex: Female

DRUGS (1)
  1. LITHIUM. [Suspect]
     Active Substance: LITHIUM
     Indication: PRODUCT USED FOR UNKNOWN INDICATION
     Route: 065

REACTIONS (7)
  - Respiratory failure [Recovered/Resolved]
  - Thyroid function test abnormal [Recovered/Resolved]
  - Hypercalcaemia [Recovered/Resolved]
  - Hypernatraemia [Recovered/Resolved]
  - Hyperglycaemia [Recovered/Resolved]
  - Pneumonia [Recovered/Resolved]
  - Endocrine disorder [Recovered/Resolved]
